FAERS Safety Report 4766133-5 (Version None)
Quarter: 2005Q3

REPORT INFORMATION
  Report Type: 
  Country: None (occurrence: None)
  Receive Date: 20050912
  Receipt Date: 20050831
  Transmission Date: 20060218
  Serious: Yes (Other)
  Sender: FDA-Public Use
  Company Number: PHBS2005DE12809

PATIENT
  Age: 36 Year
  Sex: Female

DRUGS (3)
  1. FLUVASTATIN SODIUM [Suspect]
     Dosage: 40 MG/DAY
     Route: 048
  2. WARFARIN [Concomitant]
     Indication: ANTICOAGULANT THERAPY
     Route: 048
  3. METHYLPREDNISOLONE [Concomitant]
     Indication: VASCULITIS
     Dosage: 50 MG/DAY

REACTIONS (4)
  - CEREBRAL ISCHAEMIA [None]
  - HYPOKINESIA [None]
  - PAIN [None]
  - SIMPLE PARTIAL SEIZURES [None]
